FAERS Safety Report 12682642 (Version 1)
Quarter: 2016Q3

REPORT INFORMATION
  Report Type: Other
  Country: TR (occurrence: TR)
  Receive Date: 20160825
  Receipt Date: 20160825
  Transmission Date: 20161109
  Serious: Yes (Hospitalization)
  Sender: FDA-Public Use
  Company Number: TR-NOVEL LABORATORIES, INC-2016-03223

PATIENT
  Age: 9 Year
  Sex: Female

DRUGS (1)
  1. METOCLOPRAMIDE. [Suspect]
     Active Substance: METOCLOPRAMIDE
     Indication: GASTROENTERITIS
     Route: 048

REACTIONS (3)
  - Opisthotonus [Unknown]
  - Dystonia [Unknown]
  - Oculogyric crisis [Unknown]
